FAERS Safety Report 4752064-3 (Version None)
Quarter: 2005Q3

REPORT INFORMATION
  Report Type: 
  Country: None (occurrence: None)
  Receive Date: 20050822
  Receipt Date: 20050712
  Transmission Date: 20060218
  Serious: No
  Sender: FDA-Public Use
  Company Number: PHEH2005US07736

PATIENT
  Age: 63 Year
  Sex: Female

DRUGS (2)
  1. ZELNORM [Suspect]
     Indication: GASTROINTESTINAL HYPOMOTILITY
     Dosage: 6 MG, QD, ORAL
     Route: 048
     Dates: start: 20050401
  2. MIRALAX [Suspect]

REACTIONS (4)
  - ABDOMINAL PAIN [None]
  - ATTENTION DEFICIT/HYPERACTIVITY DISORDER [None]
  - CONSTIPATION [None]
  - DRUG INEFFECTIVE [None]
